FAERS Safety Report 7873005 (Version 9)
Quarter: 2013Q3

REPORT INFORMATION
  Report Type: Report from Study
  Country: JP (occurrence: JP)
  Receive Date: 20110327
  Receipt Date: 20130911
  Transmission Date: 20140515
  Serious: Yes (Hospitalization)
  Sender: FDA-Public Use
  Company Number: JP-BRISTOL-MYERS SQUIBB COMPANY-15618747

PATIENT
  Age: 71 Year
  Sex: Male
  Weight: 92 kg

DRUGS (9)
  1. ARIPIPRAZOLE IM DEPOT [Suspect]
     Indication: SCHIZOPHRENIA
     Dosage: 9FEB11 3RD TREATMENT
     Route: 030
     Dates: start: 20110209, end: 20110309
  2. ABILIFY TABS [Suspect]
     Indication: SCHIZOPHRENIA
     Dosage: 1DEC10 1ST TREATMENT?12JAN11 2ND TREATMENT?02DEC2010-07DEC2010:24MG?09DEC2010-10MAR2010:18MG
     Route: 048
     Dates: start: 20101202, end: 20110310
  3. TASMOLIN [Concomitant]
     Dates: end: 20110310
  4. MAGLAX [Concomitant]
  5. DEPAS [Concomitant]
  6. GASMOTIN [Concomitant]
  7. SENNOSIDE [Concomitant]
     Dates: end: 20110416
  8. MICARDIS [Concomitant]
     Dates: end: 20110324
  9. AMLODIN [Concomitant]
     Dosage: AMLODIN OD
     Dates: end: 20110324

REACTIONS (1)
  - Schizophrenia [Recovered/Resolved]
